FAERS Safety Report 5128103-7 (Version None)
Quarter: 2006Q4

REPORT INFORMATION
  Report Type: 
  Country: None (occurrence: None)
  Receive Date: 20061011
  Receipt Date: 20061006
  Transmission Date: 20070319
  Serious: Yes (Hospitalization)
  Sender: FDA-Public Use
  Company Number: 2006P1000440

PATIENT
  Age: 65 Year
  Sex: Female
  Weight: 70 kg

DRUGS (8)
  1. RETEPLASE (RETEPLASE) [Suspect]
     Indication: MYOCARDIAL INFARCTION
     Dosage: IV
     Route: 042
     Dates: start: 20060314, end: 20060314
  2. REOPRO [Suspect]
     Indication: MYOCARDIAL INFARCTION
     Dosage: IV
     Route: 042
     Dates: start: 20060314
  3. METOPROLOL [Concomitant]
  4. ASPIRIN [Concomitant]
  5. SIMVASTATIN [Concomitant]
  6. TRIMETAZIDINE [Concomitant]
  7. TICLOPIDINE [Concomitant]
  8. RAMIPRIL [Concomitant]

REACTIONS (2)
  - CORONARY ARTERY STENOSIS [None]
  - VESSEL PUNCTURE SITE HAEMATOMA [None]
